FAERS Safety Report 26048245 (Version 1)
Quarter: 2025Q4

REPORT INFORMATION
  Report Type: Spontaneous
  Country: US (occurrence: US)
  Receive Date: 20251114
  Receipt Date: 20251114
  Transmission Date: 20260118
  Serious: Yes (Hospitalization, Disabling, Other)
  Sender: NOVO NORDISK
  Company Number: US-NOVOPROD-677315

PATIENT
  Sex: Male

DRUGS (1)
  1. NOVOLOG MIX 70/30 [Suspect]
     Active Substance: INSULIN ASPART
     Indication: Type 2 diabetes mellitus
     Dosage: 15 IU, BID( TWICE A DAY W SLIDING SCALE)
     Route: 058
     Dates: start: 2004

REACTIONS (11)
  - Blindness [Unknown]
  - Dyspnoea [Unknown]
  - Cataract [Unknown]
  - Gait inability [Unknown]
  - Heart rate decreased [Unknown]
  - Parkinson^s disease [Unknown]
  - Renal disorder [Unknown]
  - Diabetic eye disease [Unknown]
  - Hypertension [Unknown]
  - Blood glucose decreased [Unknown]
  - Blood glucose increased [Unknown]
